FAERS Safety Report 15098400 (Version 2)
Quarter: 2018Q3

REPORT INFORMATION
  Report Type: Spontaneous
  Country: US (occurrence: US)
  Receive Date: 20180702
  Receipt Date: 20180710
  Transmission Date: 20181010
  Serious: Yes (Other)
  Sender: FDA-Public Use
  Company Number: US-ALLERGAN-1833004US

PATIENT
  Age: 60 Year
  Sex: Female

DRUGS (1)
  1. KYBELLA [Suspect]
     Active Substance: DEOXYCHOLIC ACID
     Indication: FAT TISSUE INCREASED
     Dosage: 1 CC, SINGLE
     Route: 058
     Dates: start: 20180620, end: 20180620

REACTIONS (7)
  - Arterial occlusive disease [Recovering/Resolving]
  - Ischaemia [Recovering/Resolving]
  - Emotional distress [Recovering/Resolving]
  - Off label use [Unknown]
  - Injection site haematoma [Recovering/Resolving]
  - Injection site erythema [Recovering/Resolving]
  - Injection site discomfort [Recovering/Resolving]

NARRATIVE: CASE EVENT DATE: 20180620
